FAERS Safety Report 9381921 (Version 3)
Quarter: 2013Q3

REPORT INFORMATION
  Report Type: Report from Study
  Country: JP (occurrence: JP)
  Receive Date: 20130703
  Receipt Date: 20130814
  Transmission Date: 20140515
  Serious: Yes (Death)
  Sender: FDA-Public Use
  Company Number: JP-JNJFOC-20130615790

PATIENT
  Sex: Male
  Weight: 57 kg

DRUGS (11)
  1. ONEDURO [Suspect]
     Indication: CANCER PAIN
     Route: 062
     Dates: start: 20130208
  2. ONEDURO [Suspect]
     Indication: CANCER PAIN
     Route: 062
     Dates: start: 20130124, end: 20130207
  3. OXYCODONE HYDROCHLORIDE [Concomitant]
     Indication: CANCER PAIN
     Route: 048
     Dates: start: 20130124, end: 20130124
  4. OXYCODONE HYDROCHLORIDE [Concomitant]
     Indication: CANCER PAIN
     Route: 048
     Dates: start: 20130131, end: 20130206
  5. OXYCODONE HYDROCHLORIDE [Concomitant]
     Indication: CANCER PAIN
     Route: 048
     Dates: start: 20130130, end: 20130130
  6. OXYCODONE HYDROCHLORIDE [Concomitant]
     Indication: CANCER PAIN
     Route: 048
     Dates: start: 20130125, end: 20130129
  7. LOXONIN [Concomitant]
     Indication: CANCER PAIN
     Route: 048
  8. TAKEPRON [Concomitant]
     Indication: PROPHYLAXIS
     Route: 048
  9. THYRADIN S [Concomitant]
     Indication: HYPOTHYROIDISM
     Route: 048
  10. MAGMITT [Concomitant]
     Indication: CONSTIPATION
     Route: 048
  11. ZYRTEC [Concomitant]
     Indication: PROPHYLAXIS
     Route: 048

REACTIONS (1)
  - Lung neoplasm malignant [Fatal]
